FAERS Safety Report 19081323 (Version 1)
Quarter: 2021Q2

REPORT INFORMATION
  Report Type: Spontaneous
  Country: FR (occurrence: FR)
  Receive Date: 20210401
  Receipt Date: 20210401
  Transmission Date: 20210717
  Serious: Yes (Other)
  Sender: FDA-Public Use
  Company Number: FR-NOVOPROD-797376

PATIENT
  Age: 69 Year
  Sex: Male

DRUGS (2)
  1. METFORMINE [METFORMIN] [Concomitant]
     Active Substance: METFORMIN HYDROCHLORIDE
     Indication: PRODUCT USED FOR UNKNOWN INDICATION
     Dosage: PRODUCT STARTED 3 WEEKS BEFORE THE EVENTS
  2. OZEMPIC [Suspect]
     Active Substance: SEMAGLUTIDE
     Indication: PRODUCT USED FOR UNKNOWN INDICATION
     Dosage: PRODUCT STARTED 3 WEEKS BEFORE THE EVENTS
     Route: 065

REACTIONS (5)
  - Constipation [Unknown]
  - Decreased appetite [Unknown]
  - Retinal oedema [Unknown]
  - Asthenia [Unknown]
  - Ageusia [Unknown]
